FAERS Safety Report 10025706 (Version 1)
Quarter: 2014Q1

REPORT INFORMATION
  Report Type: Spontaneous
  Country: IE (occurrence: None)
  Receive Date: 20140314
  Receipt Date: 20140314
  Transmission Date: 20141002
  Serious: Yes (Other)
  Sender: FDA-Public Use
  Company Number: B0975547A

PATIENT
  Age: 12 Month
  Sex: Female

DRUGS (1)
  1. SALBUTAMOL SULPHATE (FORMULATION UNKNOWN) (GENERIC) (ALBUTEROL SULFATE) [Suspect]
     Indication: RHINITIS
     Route: 055

REACTIONS (1)
  - Lactic acidosis [None]
